FAERS Safety Report 11676256 (Version 1)
Quarter: 2015Q4

REPORT INFORMATION
  Report Type: Spontaneous
  Country: US (occurrence: US)
  Receive Date: 20151027
  Receipt Date: 20151027
  Transmission Date: 20160304
  Serious: No
  Sender: FDA-Public Use
  Company Number: US-ELI_LILLY_AND_COMPANY-US201005005284

PATIENT
  Age: 56 Year
  Sex: Female

DRUGS (18)
  1. XANAX [Concomitant]
     Active Substance: ALPRAZOLAM
     Dosage: 2 MG, 3/D
  2. MIDODRINE [Concomitant]
     Active Substance: MIDODRINE
     Dosage: 5 MG, DAILY (1/D)
  3. FORTEO [Suspect]
     Active Substance: TERIPARATIDE
     Indication: OSTEOPOROSIS
     Dosage: 20 UG, DAILY (1/D)
     Dates: start: 20090915
  4. DILAUDID [Concomitant]
     Active Substance: HYDROMORPHONE HYDROCHLORIDE
     Dosage: 2 D/F, 4/D
  5. VITAMIN B12 [Concomitant]
     Active Substance: CYANOCOBALAMIN
     Dosage: UNK, UNKNOWN
  6. PHENERGAN [Concomitant]
     Active Substance: PROMETHAZINE HYDROCHLORIDE
     Dosage: 25 MG, AS NEEDED
  7. TRAZODONE [Concomitant]
     Active Substance: TRAZODONE HYDROCHLORIDE
     Dosage: 2 D/F, EACH EVENING
  8. LOMOTIL [Concomitant]
     Active Substance: ATROPINE SULFATE\DIPHENOXYLATE HYDROCHLORIDE
     Dosage: 1 D/F, AS NEEDED
  9. PRILOSEC [Concomitant]
     Active Substance: OMEPRAZOLE MAGNESIUM
     Dosage: 20 MG, 2/D
  10. VITAMIN D [Concomitant]
     Active Substance: CHOLECALCIFEROL
     Dosage: UNK, UNKNOWN
  11. FORTEO [Suspect]
     Active Substance: TERIPARATIDE
     Dosage: 20 UG, DAILY (1/D)
  12. POTASSIUM CHLORIDE. [Concomitant]
     Active Substance: POTASSIUM CHLORIDE
     Dosage: 10 MEQ, 3/D
  13. OXYBUTYNIN [Concomitant]
     Active Substance: OXYBUTYNIN
     Dosage: 2 D/F, 3/D
  14. MULTIVITAMIN [Concomitant]
     Active Substance: VITAMINS
     Dosage: UNK, UNKNOWN
  15. LASIX [Concomitant]
     Active Substance: FUROSEMIDE
     Dosage: 40 MG, DAILY (1/D)
  16. CALCIUM [Concomitant]
     Active Substance: CALCIUM
     Dosage: UNK, UNKNOWN
  17. FORTEO [Suspect]
     Active Substance: TERIPARATIDE
     Dosage: 20 UG, DAILY (1/D)
  18. FLUOXETINE [Concomitant]
     Active Substance: FLUOXETINE HYDROCHLORIDE
     Dosage: 20 MG, 3/D

REACTIONS (10)
  - Humerus fracture [Recovered/Resolved]
  - Upper limb fracture [Unknown]
  - Painful respiration [Unknown]
  - Ligament sprain [Unknown]
  - Fall [Unknown]
  - Pulmonary contusion [Unknown]
  - Contusion [Unknown]
  - Movement disorder [Unknown]
  - Fall [Unknown]
  - Dyspnoea [Unknown]

NARRATIVE: CASE EVENT DATE: 201004
